FAERS Safety Report 7604794-3 (Version None)
Quarter: 2011Q3

REPORT INFORMATION
  Report Type: 
  Country: None (occurrence: None)
  Receive Date: 20110712
  Receipt Date: 20110628
  Transmission Date: 20111222
  Serious: Yes (Hospitalization)
  Sender: FDA-Public Use
  Company Number: US-AMGEN-USASP2011033183

PATIENT
  Sex: Female

DRUGS (4)
  1. SULFASALAZINE [Concomitant]
     Dosage: 2 MG, UNK
     Dates: start: 20110101
  2. METHOTREXATE [Concomitant]
     Dosage: 8 MG, UNK
     Dates: start: 20110101
  3. PLAQUENIL [Concomitant]
     Dosage: 2 MG, UNK
     Dates: start: 20110101
  4. ENBREL [Suspect]
     Indication: RHEUMATOID ARTHRITIS
     Dosage: 50 MG, QWK
     Dates: start: 20000101

REACTIONS (12)
  - JOINT STIFFNESS [None]
  - GAIT DISTURBANCE [None]
  - DYSSTASIA [None]
  - JOINT DISLOCATION [None]
  - ARTHRITIS [None]
  - HERPES ZOSTER [None]
  - NODULE [None]
  - RHEUMATOID NODULE [None]
  - PAIN IN EXTREMITY [None]
  - ARTHRODESIS [None]
  - ANKLE FRACTURE [None]
  - JOINT RANGE OF MOTION DECREASED [None]
